FAERS Safety Report 10298670 (Version 1)
Quarter: 2014Q3

REPORT INFORMATION
  Report Type: Spontaneous
  Country: DK (occurrence: FR)
  Receive Date: 20140711
  Receipt Date: 20140711
  Transmission Date: 20150326
  Serious: Yes (Hospitalization, Other)
  Sender: FDA-Public Use
  Company Number: FR-FRI-1000068824

PATIENT
  Age: 80 Year
  Sex: Female

DRUGS (5)
  1. XARELTO [Concomitant]
     Active Substance: RIVAROXABAN
  2. COAPROVEL [Suspect]
     Active Substance: HYDROCHLOROTHIAZIDE\IRBESARTAN
     Dosage: 300 MG
     Route: 048
  3. MEMANTINE [Suspect]
     Active Substance: MEMANTINE
     Indication: DEMENTIA
     Dosage: 10 MG
     Route: 048
     Dates: start: 20140324, end: 20140604
  4. PANTOPRAZOLE [Suspect]
     Active Substance: PANTOPRAZOLE SODIUM
     Route: 048
     Dates: end: 20140522
  5. LERCAN [Suspect]
     Active Substance: LERCANIDIPINE
     Dosage: 20 MG
     Route: 048

REACTIONS (2)
  - Hyponatraemia [Recovered/Resolved]
  - Off label use [Recovered/Resolved]

NARRATIVE: CASE EVENT DATE: 20140326
